FAERS Safety Report 10332622 (Version 2)
Quarter: 2014Q3

REPORT INFORMATION
  Report Type: Spontaneous
  Country: DE (occurrence: DE)
  Receive Date: 20140722
  Receipt Date: 20140912
  Transmission Date: 20150326
  Serious: Yes (Other)
  Sender: FDA-Public Use
  Company Number: DE-GLAXOSMITHKLINE-D0084842A

PATIENT
  Age: 33 Year
  Sex: Female

DRUGS (2)
  1. L-THYROXIN [Concomitant]
     Active Substance: LEVOTHYROXINE SODIUM
     Dosage: 50UG UNKNOWN
     Route: 048
  2. DUAC [Suspect]
     Active Substance: BENZOYL PEROXIDE\CLINDAMYCIN PHOSPHATE
     Indication: ACNE
     Route: 061
     Dates: start: 20140710, end: 20140711

REACTIONS (9)
  - Skin discolouration [Recovering/Resolving]
  - Skin disorder [Recovering/Resolving]
  - Disability [Recovered/Resolved]
  - Chemical burn of skin [Recovering/Resolving]
  - Erythema [Recovering/Resolving]
  - Toxic skin eruption [Recovering/Resolving]
  - Swelling face [Recovering/Resolving]
  - Dermatitis contact [Recovering/Resolving]
  - Skin burning sensation [Recovering/Resolving]

NARRATIVE: CASE EVENT DATE: 201407
